FAERS Safety Report 5095934-1 (Version None)
Quarter: 2006Q3

REPORT INFORMATION
  Report Type: 
  Country: None (occurrence: None)
  Receive Date: 20060731
  Receipt Date: 20060422
  Transmission Date: 20061208
  Serious: No
  Sender: FDA-Public Use
  Company Number: 2006PV012532

PATIENT
  Age: 70 Year
  Sex: Female
  Weight: 87.0906 kg

DRUGS (6)
  1. BYETTA [Suspect]
     Indication: DIABETES MELLITUS NON-INSULIN-DEPENDENT
     Dosage: SEE IMAGE
     Route: 058
     Dates: start: 20060116, end: 20060228
  2. BYETTA [Suspect]
     Indication: INSULIN RESISTANCE
     Dosage: SEE IMAGE
     Route: 058
     Dates: start: 20060116, end: 20060228
  3. BYETTA [Suspect]
     Indication: DIABETES MELLITUS NON-INSULIN-DEPENDENT
     Dosage: SEE IMAGE
     Route: 058
     Dates: start: 20060301, end: 20060401
  4. BYETTA [Suspect]
     Indication: INSULIN RESISTANCE
     Dosage: SEE IMAGE
     Route: 058
     Dates: start: 20060301, end: 20060401
  5. METFORMIN HCL [Concomitant]
  6. GLYBURIDE [Concomitant]

REACTIONS (6)
  - DIARRHOEA [None]
  - DRUG INEFFECTIVE [None]
  - HEADACHE [None]
  - NAUSEA [None]
  - WEIGHT DECREASED [None]
  - WEIGHT INCREASED [None]
